FAERS Safety Report 8133307-5 (Version None)
Quarter: 2012Q1

REPORT INFORMATION
  Report Type: 
  Country: None (occurrence: None)
  Receive Date: 20120213
  Receipt Date: 20120203
  Transmission Date: 20120608
  Serious: Yes (Life-Threatening, Hospitalization, Other)
  Sender: FDA-Public Use
  Company Number: GB-BRISTOL-MYERS SQUIBB COMPANY-16319246

PATIENT
  Age: 54 Year
  Sex: Male

DRUGS (10)
  1. ACETYLSALICYLIC ACID SRT [Concomitant]
     Route: 048
  2. FUROSEMIDE [Concomitant]
     Indication: HYPERTENSION
     Route: 048
     Dates: end: 20111209
  3. HEPARIN [Concomitant]
  4. BISOPROLOL FUMARATE [Concomitant]
     Indication: HYPERTENSION
     Route: 048
  5. ATORVASTATIN [Concomitant]
     Indication: HYPERCHOLESTEROLAEMIA
     Route: 048
  6. RAMIPRIL [Suspect]
     Indication: ACUTE CORONARY SYNDROME
     Route: 048
  7. CLOPIDOGREL BISULFATE [Concomitant]
  8. METFORMIN HCL [Suspect]
     Indication: DIABETES MELLITUS MANAGEMENT
     Route: 048
     Dates: end: 20111209
  9. RAMIPRIL [Suspect]
     Indication: HYPERTENSION
     Route: 048
  10. NITROGLYCERIN [Concomitant]
     Indication: ANGINA PECTORIS
     Route: 060

REACTIONS (4)
  - TOXICITY TO VARIOUS AGENTS [None]
  - RENAL FAILURE ACUTE [None]
  - SEPSIS [None]
  - LACTIC ACIDOSIS [None]
